FAERS Safety Report 9822615 (Version 1)
Quarter: 2014Q1

REPORT INFORMATION
  Report Type: Spontaneous
  Country: US (occurrence: US)
  Receive Date: 20140116
  Receipt Date: 20140116
  Transmission Date: 20141002
  Serious: Yes (Other)
  Sender: FDA-Public Use
  Company Number: US-ABBVIE-14P-163-1187854-00

PATIENT
  Age: 46 Year
  Sex: Male
  Weight: 118.04 kg

DRUGS (16)
  1. ANDROGEL [Suspect]
     Indication: BLOOD TESTOSTERONE DECREASED
     Dosage: STICK PACK
     Dates: start: 20130910
  2. BUG BOMB [Suspect]
     Indication: PRODUCT USED FOR UNKNOWN INDICATION
  3. VYTORIN [Concomitant]
     Indication: BLOOD CHOLESTEROL INCREASED
  4. ATENELOL [Concomitant]
     Indication: HYPERTENSION
  5. HYCHLOROTHIAZIDE [Concomitant]
     Indication: DIURETIC THERAPY
  6. METFORMIN [Concomitant]
     Indication: DIABETES MELLITUS
  7. DOXYCYCLINE [Concomitant]
     Indication: PRODUCT USED FOR UNKNOWN INDICATION
  8. FENOPROFEN [Concomitant]
     Indication: ARTHRITIS
  9. FENOPROFEN [Concomitant]
     Indication: TENDONITIS
  10. CLONOPIN [Concomitant]
     Indication: ANXIETY
  11. XANAX [Concomitant]
     Indication: ANXIETY
  12. MOMETASONE [Concomitant]
     Indication: HYPERSENSITIVITY
  13. ROBAXIN [Concomitant]
     Indication: MUSCLE RELAXANT THERAPY
  14. NIZORAL [Concomitant]
     Indication: PSORIASIS
  15. ALBUTEROL [Concomitant]
     Indication: ASTHMA
  16. PROAIR HFA [Concomitant]
     Indication: ASTHMA

REACTIONS (7)
  - Pulmonary mass [Not Recovered/Not Resolved]
  - Haemoptysis [Recovered/Resolved]
  - Epistaxis [Recovered/Resolved]
  - Insomnia [Not Recovered/Not Resolved]
  - Cough [Not Recovered/Not Resolved]
  - Anxiety [Not Recovered/Not Resolved]
  - Exposure to toxic agent [Unknown]
